FAERS Safety Report 6006748-X (Version None)
Quarter: 2008Q4

REPORT INFORMATION
  Report Type: 
  Country: None (occurrence: None)
  Receive Date: 20081217
  Receipt Date: 20081211
  Transmission Date: 20090506
  Serious: Yes (Hospitalization, Other)
  Sender: FDA-Public Use
  Company Number: ES-ABBOTT-07P-144-0357197-00

PATIENT
  Age: 50 Year
  Sex: Male

DRUGS (2)
  1. (RITONAVIR SOFT GELATIN CAPSULES) [Suspect]
     Indication: HIV INFECTION
     Route: 048
     Dates: start: 20050601, end: 20061115
  2. APTIVUS [Suspect]
     Indication: HIV INFECTION
     Route: 048
     Dates: start: 20050601, end: 20061115

REACTIONS (1)
  - INTRAVENTRICULAR HAEMORRHAGE [None]
